FAERS Safety Report 6290928-2 (Version None)
Quarter: 2009Q3

REPORT INFORMATION
  Report Type: 
  Country: None (occurrence: None)
  Receive Date: 20090729
  Receipt Date: 20090729
  Transmission Date: 20100115
  Serious: Yes (Life-Threatening, Hospitalization, Other)
  Sender: FDA-Public Use
  Company Number: None

PATIENT
  Age: 29 Year
  Sex: Female
  Weight: 86.1834 kg

DRUGS (1)
  1. MELOXICAM [Suspect]
     Indication: ARTHRALGIA
     Dosage: 1 DAILY, PO
     Route: 048
     Dates: start: 20090722, end: 20090723

REACTIONS (1)
  - DRUG HYPERSENSITIVITY [None]
